FAERS Safety Report 7518191-2 (Version None)
Quarter: 2011Q2

REPORT INFORMATION
  Report Type: 
  Country: None (occurrence: None)
  Receive Date: 20110512
  Receipt Date: 20110406
  Transmission Date: 20111010
  Serious: No
  Sender: FDA-Public Use
  Company Number: 1000019912

PATIENT
  Age: 30 Year
  Sex: Female

DRUGS (7)
  1. SUBOXONE (SUBOXONE) (SUBOXONE) [Concomitant]
  2. CELEXA [Concomitant]
  3. SAVELLA [Suspect]
     Indication: NEURALGIA
     Dosage: 100 MG (50 MG, 2 IN 1 D), ORAL
     Route: 048
     Dates: start: 20110401, end: 20110403
  4. SAVELLA [Suspect]
     Indication: NEURALGIA
     Dosage: 12.5 MG (12.5 MG, 1 IN 1 D), ORAL; 25 MG (12.5 MG, 2 IN 1 D), ORAL; 50 MG (25 MG, 2 1 IN D), ORAL
     Route: 048
     Dates: start: 20110326, end: 20110327
  5. SAVELLA [Suspect]
     Indication: NEURALGIA
     Dosage: 12.5 MG (12.5 MG, 1 IN 1 D), ORAL; 25 MG (12.5 MG, 2 IN 1 D), ORAL; 50 MG (25 MG, 2 1 IN D), ORAL
     Route: 048
     Dates: start: 20110328, end: 20110331
  6. SAVELLA [Suspect]
     Indication: NEURALGIA
     Dosage: 12.5 MG (12.5 MG, 1 IN 1 D), ORAL; 25 MG (12.5 MG, 2 IN 1 D), ORAL; 50 MG (25 MG, 2 1 IN D), ORAL
     Route: 048
     Dates: start: 20110325, end: 20110325
  7. LYRICA [Concomitant]

REACTIONS (4)
  - DIZZINESS [None]
  - BLOOD PRESSURE INCREASED [None]
  - OEDEMA [None]
  - WEIGHT INCREASED [None]
